FAERS Safety Report 19934205 (Version 2)
Quarter: 2021Q4

REPORT INFORMATION
  Report Type: Spontaneous
  Country: US (occurrence: US)
  Receive Date: 20211008
  Receipt Date: 20211015
  Transmission Date: 20220303
  Serious: Yes (Other)
  Sender: FDA-Public Use
  Company Number: US-LUNDBECK-DKLU3039353

PATIENT
  Age: 6 Year
  Sex: Female

DRUGS (5)
  1. SABRIL [Suspect]
     Active Substance: VIGABATRIN
     Indication: Epilepsy
     Route: 048
     Dates: start: 20151216
  2. DIVALPROEX SODIUM [Concomitant]
     Active Substance: DIVALPROEX SODIUM
     Indication: Product used for unknown indication
     Route: 065
  3. EPIDIOLEX [Concomitant]
     Active Substance: CANNABIDIOL
     Indication: Product used for unknown indication
     Route: 065
  4. TOPIRAMATE [Concomitant]
     Active Substance: TOPIRAMATE
     Indication: Product used for unknown indication
     Route: 065
  5. DIASTAT [Concomitant]
     Active Substance: DIAZEPAM
     Indication: Product used for unknown indication
     Route: 065

REACTIONS (3)
  - Drug withdrawal convulsions [Recovered/Resolved]
  - Product dose omission issue [Unknown]
  - Wrong patient received product [Unknown]

NARRATIVE: CASE EVENT DATE: 20211003
